FAERS Safety Report 8529508-4 (Version None)
Quarter: 2012Q3

REPORT INFORMATION
  Report Type: 
  Country: None (occurrence: None)
  Receive Date: 20120723
  Receipt Date: 20120712
  Transmission Date: 20120928
  Serious: Yes (Other)
  Sender: FDA-Public Use
  Company Number: US-JNJFOC-20120706822

PATIENT
  Sex: Female
  Weight: 79.38 kg

DRUGS (22)
  1. REMICADE [Suspect]
     Indication: RHEUMATOID ARTHRITIS
     Route: 042
     Dates: start: 20120525
  2. LEVOTHYROXINE SODIUM [Concomitant]
     Dosage: EVERY OTHER DAY
     Route: 048
  3. PREDNISONE [Suspect]
     Indication: RHEUMATOID ARTHRITIS
     Route: 048
     Dates: end: 20120101
  4. LEVOTHYROXINE SODIUM [Concomitant]
     Indication: THYROID DISORDER
     Dosage: EVERY OTHER DAY
     Route: 048
  5. HYDROCHLOROTHIAZIDE [Concomitant]
     Indication: BLOOD PRESSURE
     Dosage: 2 PUFFS 4-6 HOURS AS NEEDED
     Route: 048
  6. LUTEIN [Concomitant]
     Indication: MEDICAL DIET
     Route: 048
  7. ASPIRIN [Concomitant]
     Indication: PROPHYLAXIS
     Route: 048
  8. OMEPRAZOLE [Concomitant]
     Indication: HIATUS HERNIA
     Dosage: 3-4 TIME A DAY
     Route: 048
     Dates: start: 19940101
  9. FLONASE [Concomitant]
     Indication: SINUSITIS
     Route: 055
  10. LIDODERM [Concomitant]
     Indication: PAIN
     Route: 062
  11. TRAMADOL HYDROCHLORIDE [Concomitant]
     Indication: PAIN
     Route: 048
     Dates: start: 20110101
  12. LYRICA [Concomitant]
     Indication: FIBROMYALGIA
     Route: 065
     Dates: start: 20090101
  13. CYCLOBENAZPRINE [Concomitant]
     Indication: MUSCLE SPASMS
     Route: 048
  14. ALBUTEROL SULPHATE [Concomitant]
     Dosage: NEBULIZER
     Route: 055
  15. VITAMIN B COMPLEX CAP [Concomitant]
     Indication: MEDICAL DIET
     Route: 048
  16. HYDROCODONE [Concomitant]
     Indication: PAIN
     Dosage: DOSE REPORTED AS ^5/500 MG^
     Route: 048
  17. REMICADE [Suspect]
     Route: 042
     Dates: start: 20120101
  18. FLONASE [Concomitant]
     Indication: ASTHMA
     Route: 055
  19. MULTI-VITAMINS [Concomitant]
     Indication: MEDICAL DIET
     Route: 048
  20. OMEGA 3-6-9 [Concomitant]
     Indication: MEDICAL DIET
     Route: 048
  21. PREDNISONE [Suspect]
     Route: 048
     Dates: start: 20120101
  22. ALBUTEROL SULPHATE [Concomitant]
     Indication: ASTHMA
     Dosage: 2 PUFFS/4-6 HOURS AS NECESSARY
     Route: 045

REACTIONS (12)
  - ERYTHEMA [None]
  - SOMNOLENCE [None]
  - SPINAL PAIN [None]
  - IMPAIRED HEALING [None]
  - HEADACHE [None]
  - INFUSION RELATED REACTION [None]
  - FALL [None]
  - GASTRIC DISORDER [None]
  - OEDEMA PERIPHERAL [None]
  - FATIGUE [None]
  - NAUSEA [None]
  - CONTUSION [None]
